FAERS Safety Report 4263122-4 (Version None)
Quarter: 2004Q1

REPORT INFORMATION
  Report Type: 
  Country: None (occurrence: None)
  Receive Date: 20040105
  Receipt Date: 20031126
  Transmission Date: 20041129
  Serious: Yes (Other)
  Sender: FDA-Public Use
  Company Number: FR-BRISTOL-MYERS SQUIBB COMPANY-12445052

PATIENT
  Age: 56 Year
  Sex: Female

DRUGS (3)
  1. TAXOL [Suspect]
     Indication: BREAST CANCER METASTATIC
     Route: 042
     Dates: start: 19970409, end: 19970611
  2. TAXOTERE [Suspect]
     Indication: BREAST CANCER METASTATIC
     Route: 042
     Dates: start: 19970409, end: 19970611
  3. PROZAC [Concomitant]
     Dosage: STARTED PRIOR TO THE 4TH COURSE

REACTIONS (1)
  - PETIT MAL EPILEPSY [None]
